FAERS Safety Report 9839070 (Version 1)
Quarter: 2014Q1

REPORT INFORMATION
  Report Type: Spontaneous
  Country: TR (occurrence: TR)
  Receive Date: 20140123
  Receipt Date: 20140123
  Transmission Date: 20141002
  Serious: Yes (Hospitalization)
  Sender: FDA-Public Use
  Company Number: PHHY2014TR004884

PATIENT
  Age: 26 Year
  Sex: Male

DRUGS (1)
  1. TACROLIMUS [Suspect]
     Indication: IMMUNOSUPPRESSION

REACTIONS (23)
  - Radiculitis brachial [Recovered/Resolved]
  - Osmotic demyelination syndrome [Recovered/Resolved]
  - Hallucination, visual [Recovered/Resolved]
  - Confusional state [Recovered/Resolved]
  - Pyrexia [Recovered/Resolved]
  - Central nervous system lesion [Recovered/Resolved]
  - Musculoskeletal pain [Recovered/Resolved]
  - Radiculopathy [Recovered/Resolved]
  - Convulsion [Recovered/Resolved]
  - Depressed level of consciousness [Recovered/Resolved]
  - Diplopia [Recovered/Resolved]
  - Eyelid ptosis [Recovered/Resolved]
  - Ataxia [Recovered/Resolved]
  - Muscular weakness [Recovered/Resolved]
  - IIIrd nerve paralysis [Recovered/Resolved]
  - VIth nerve paralysis [Recovered/Resolved]
  - Nystagmus [Recovered/Resolved]
  - Hyporeflexia [Recovered/Resolved]
  - Extensor plantar response [Recovered/Resolved]
  - Dysarthria [Recovered/Resolved]
  - Cerebellar syndrome [Recovered/Resolved]
  - Balance disorder [Recovered/Resolved]
  - Muscle atrophy [Recovered/Resolved]
